FAERS Safety Report 14261695 (Version 8)
Quarter: 2018Q2

REPORT INFORMATION
  Report Type: Spontaneous
  Country: FR (occurrence: FR)
  Receive Date: 20171208
  Receipt Date: 20180609
  Transmission Date: 20180711
  Serious: Yes (Hospitalization, Other)
  Sender: FDA-Public Use
  Company Number: FR-AUROBINDO-AUR-APL-2015-05047

PATIENT
  Age: 34 Year
  Sex: Female

DRUGS (21)
  1. ROPIVACAINE [Suspect]
     Active Substance: ROPIVACAINE
     Indication: EPIDURAL ANAESTHESIA
     Dosage: 20 ML OF A SOLUTION OF 1 MG/ML ROPIVACAINE AND 0.25 ??G/ML SUFENTANIL
     Route: 008
  2. NEFOPAM [Concomitant]
     Active Substance: NEFOPAM
     Indication: ANAESTHESIA
  3. MORPHINE [Suspect]
     Active Substance: MORPHINE
     Indication: EPIDURAL ANALGESIA
     Dosage: 2 MG, UNK
     Route: 065
  4. LIDOCAINE. [Suspect]
     Active Substance: LIDOCAINE
     Indication: ANAESTHESIA
     Dosage: 15 ML OF LIDOCAINE 20MG/ML WITH ADRENALIN ()
     Route: 065
  5. SUFENTANIL [Suspect]
     Active Substance: SUFENTANIL
     Dosage: UNK ?G/ML, UNK ()
     Route: 008
  6. ENOXAPARIN [Concomitant]
     Active Substance: ENOXAPARIN
     Indication: EMBOLISM VENOUS
     Dosage: 40 MG, DAILY
     Route: 058
  7. PARACETAMOL TABLET [Suspect]
     Active Substance: ACETAMINOPHEN
     Indication: ANALGESIC THERAPY
     Dosage: 1 G, QID
     Route: 048
  8. ASPIRIN                            /00002701/ [Suspect]
     Active Substance: ASPIRIN
     Indication: PRODUCT USED FOR UNKNOWN INDICATION
     Dosage: UNK
     Route: 065
  9. ADRENALINE                         /00003901/ [Concomitant]
     Active Substance: EPINEPHRINE
     Indication: EPIDURAL ANALGESIA
     Dosage: 2 MG, DAILY
     Route: 065
  10. NEFOPAM [Concomitant]
     Active Substance: NEFOPAM
     Indication: ANALGESIC THERAPY
     Dosage: 40 MG, QID
     Route: 065
  11. KETOPROFEN. [Suspect]
     Active Substance: KETOPROFEN
     Dosage: 50 MG, QID
     Route: 048
  12. MORPHINE [Suspect]
     Active Substance: MORPHINE
     Dosage: 2 MG, QID
     Route: 008
  13. ROPIVACAINE [Suspect]
     Active Substance: ROPIVACAINE
     Indication: EPIDURAL ANALGESIA
     Dosage: 20 ML, UNK
     Route: 008
  14. LIDOCAINE. [Suspect]
     Active Substance: LIDOCAINE
     Indication: EPIDURAL ANAESTHESIA
  15. SUFENTANIL [Suspect]
     Active Substance: SUFENTANIL
     Indication: EPIDURAL ANALGESIA
     Dosage: 0.25 UNK, UNK
     Route: 065
  16. KETOPROFEN. [Suspect]
     Active Substance: KETOPROFEN
     Indication: ANALGESIC THERAPY
     Dosage: 50 MG, FOUR TIMES/DAY
     Route: 048
  17. SUFENTANIL [Suspect]
     Active Substance: SUFENTANIL
     Indication: EPIDURAL ANAESTHESIA
     Dosage: 20 ML OF A SOLUTION OF 1 MG/ML ROPIVACAINE AND 0.25 MUG/ML SUFENTANIL ()
     Route: 008
  18. SUFENTANIL [Suspect]
     Active Substance: SUFENTANIL
     Indication: ANAESTHESIA
     Dosage: 20 ML OF A SOLUTION OF 1 MG/ML ROPIVACAINE AND 0.25 ??G/ML SUFENTANIL ()
     Route: 008
  19. MORPHINE [Suspect]
     Active Substance: MORPHINE
     Dosage: 8 MG, (2 MG, QID)
     Route: 008
  20. LIDOCAINE. [Suspect]
     Active Substance: LIDOCAINE
     Indication: EPIDURAL ANALGESIA
     Dosage: 15 ML, UNK
     Route: 065
  21. ENOXAPARIN [Concomitant]
     Active Substance: ENOXAPARIN
     Indication: THROMBOSIS PROPHYLAXIS
     Dosage: 40 MG, UNK
     Route: 058

REACTIONS (12)
  - Peripheral nerve injury [Recovered/Resolved]
  - Nervous system disorder [Recovering/Resolving]
  - Product use issue [Unknown]
  - Paraesthesia [Recovered/Resolved]
  - Foetal heart rate abnormal [Recovering/Resolving]
  - Epidural haemorrhage [Recovered/Resolved]
  - Spinal epidural haemorrhage [Recovered/Resolved]
  - Maternal exposure during pregnancy [Unknown]
  - Epistaxis [Unknown]
  - Gait disturbance [Recovered/Resolved]
  - Neuropathy peripheral [Recovered/Resolved]
  - Epidural analgesia [Recovering/Resolving]
